FAERS Safety Report 7474491-6 (Version None)
Quarter: 2011Q2

REPORT INFORMATION
  Report Type: 
  Country: None (occurrence: None)
  Receive Date: 20110512
  Receipt Date: 20110111
  Transmission Date: 20111010
  Serious: No
  Sender: FDA-Public Use
  Company Number: US-BAYER-2011-005436

PATIENT
  Sex: Male

DRUGS (2)
  1. AVELOX [Suspect]
     Indication: PRODUCT USED FOR UNKNOWN INDICATION
  2. BENADRYL [Concomitant]

REACTIONS (5)
  - AURICULAR SWELLING [None]
  - PRURITUS [None]
  - FLUSHING [None]
  - HYPERSENSITIVITY [None]
  - LIP SWELLING [None]
